FAERS Safety Report 17768191 (Version 1)
Quarter: 2020Q2

REPORT INFORMATION
  Report Type: Spontaneous
  Country: IT (occurrence: IT)
  Receive Date: 20200511
  Receipt Date: 20200511
  Transmission Date: 20200714
  Serious: Yes (Other)
  Sender: FDA-Public Use
  Company Number: IT-JAZZ-2020-IT-006012

PATIENT
  Age: 7 Year
  Sex: Male
  Weight: 20 kg

DRUGS (1)
  1. ASPARAGINASE [Suspect]
     Active Substance: ASPARAGINASE
     Indication: LYMPHOMA
     Dosage: 8200 KILO-INTERNATIONAL UNIT
     Route: 042
     Dates: start: 20200427, end: 20200427

REACTIONS (4)
  - Rash [Recovered/Resolved]
  - Lip pain [Recovered/Resolved]
  - Back pain [Recovered/Resolved]
  - Lip oedema [Recovered/Resolved]

NARRATIVE: CASE EVENT DATE: 20200427
